FAERS Safety Report 25849667 (Version 2)
Quarter: 2025Q4

REPORT INFORMATION
  Report Type: Spontaneous
  Country: US (occurrence: US)
  Receive Date: 20250926
  Receipt Date: 20251024
  Transmission Date: 20260117
  Serious: No
  Sender: ROCHE
  Company Number: US-ROCHE-10000388848

PATIENT
  Age: 85 Year
  Sex: Male
  Weight: 62.8 kg

DRUGS (1)
  1. RITUXAN HYCELA [Suspect]
     Active Substance: HYALURONIDASE (HUMAN RECOMBINANT)\RITUXIMAB
     Indication: Lymphoma
     Dosage: 1,400MG/23,400 UNITS/11.7 ML?SINGLE DOSE VIAL
     Route: 058

REACTIONS (3)
  - Product container issue [Unknown]
  - No adverse event [Unknown]
  - Product preparation error [Unknown]

NARRATIVE: CASE EVENT DATE: 20250909
